FAERS Safety Report 4611959-1 (Version None)
Quarter: 2005Q2

REPORT INFORMATION
  Report Type: 
  Country: None (occurrence: None)
  Receive Date: 20050308
  Receipt Date: 20041221
  Transmission Date: 20051028
  Serious: Yes (Other)
  Sender: FDA-Public Use
  Company Number: 2004UW25914

PATIENT
  Age: 77 Year
  Sex: Female
  Weight: 68.038 kg

DRUGS (5)
  1. CRESTOR [Suspect]
     Indication: HYPERCHOLESTEROLAEMIA
     Dosage: 10 MG PO
     Route: 048
  2. CRESTOR [Suspect]
     Indication: HYPERCHOLESTEROLAEMIA
     Dosage: 20 MG PO
     Route: 048
  3. MICARDIS [Concomitant]
  4. CARTIA XT [Concomitant]
  5. DUCUSATE SODIUM [Concomitant]

REACTIONS (1)
  - BLOOD CREATININE INCREASED [None]
